FAERS Safety Report 21889121 (Version 4)
Quarter: 2023Q2

REPORT INFORMATION
  Report Type: Spontaneous
  Country: US (occurrence: US)
  Receive Date: 20230120
  Receipt Date: 20230407
  Transmission Date: 20230721
  Serious: Yes (Hospitalization, Other)
  Sender: FDA-Public Use
  Company Number: US-BEH-2023154175

PATIENT
  Sex: Male

DRUGS (8)
  1. IDELVION [Suspect]
     Active Substance: COAGULATION FACTOR IX RECOMBINANT HUMAN
     Indication: Factor IX deficiency
     Dosage: 1200 INTERNATIONAL UNIT, QW
     Route: 042
     Dates: start: 202209
  2. IDELVION [Suspect]
     Active Substance: COAGULATION FACTOR IX RECOMBINANT HUMAN
     Indication: Factor IX deficiency
     Dosage: 1200 INTERNATIONAL UNIT, QW
     Route: 042
     Dates: start: 202209
  3. IDELVION [Suspect]
     Active Substance: COAGULATION FACTOR IX RECOMBINANT HUMAN
     Indication: Prophylaxis
     Dosage: 1250 INTERNATIONAL UNIT, QW
     Route: 042
     Dates: start: 202209
  4. IDELVION [Suspect]
     Active Substance: COAGULATION FACTOR IX RECOMBINANT HUMAN
     Indication: Prophylaxis
     Dosage: 1250 INTERNATIONAL UNIT, QW
     Route: 042
     Dates: start: 202209
  5. IDELVION [Suspect]
     Active Substance: COAGULATION FACTOR IX RECOMBINANT HUMAN
     Dosage: 1093 INTERNATIONAL UNIT, QW
     Route: 042
     Dates: start: 202209
  6. IDELVION [Suspect]
     Active Substance: COAGULATION FACTOR IX RECOMBINANT HUMAN
     Dosage: 1093 INTERNATIONAL UNIT, QW
     Route: 042
     Dates: start: 202209
  7. IDELVION [Suspect]
     Active Substance: COAGULATION FACTOR IX RECOMBINANT HUMAN
     Dosage: 267 INTERNATIONAL UNIT, QW
     Route: 042
     Dates: start: 202209
  8. IDELVION [Suspect]
     Active Substance: COAGULATION FACTOR IX RECOMBINANT HUMAN
     Dosage: 267 INTERNATIONAL UNIT, QW
     Route: 042
     Dates: start: 202209

REACTIONS (6)
  - Haemorrhage [Unknown]
  - Swelling [Unknown]
  - Haematoma [Unknown]
  - Haemorrhage [Not Recovered/Not Resolved]
  - No adverse event [Unknown]
  - Therapy cessation [Unknown]
